FAERS Safety Report 10228011 (Version 3)
Quarter: 2014Q2

REPORT INFORMATION
  Report Type: Spontaneous
  Country: US (occurrence: US)
  Receive Date: 20140610
  Receipt Date: 20140626
  Transmission Date: 20141212
  Serious: Yes (Life-Threatening, Other)
  Sender: FDA-Public Use
  Company Number: US-009507513-1101USA02457

PATIENT
  Age: 50 Year
  Sex: Male

DRUGS (3)
  1. HYDROCHLOROTHIAZIDE [Suspect]
     Dosage: 625 MG, UNK
     Route: 048
  2. LISINOPRIL [Suspect]
     Dosage: 1 G, UNK
     Route: 048
  3. AMLODIPINE [Suspect]
     Dosage: 500 MG, UNK
     Route: 048

REACTIONS (8)
  - Intentional overdose [Unknown]
  - Suicide attempt [Unknown]
  - Respiratory failure [Unknown]
  - Sepsis [Unknown]
  - Cardiac output decreased [Recovered/Resolved]
  - Shock [Unknown]
  - Hypotension [Unknown]
  - Renal failure acute [Unknown]
